FAERS Safety Report 19682587 (Version 1)
Quarter: 2021Q3

REPORT INFORMATION
  Report Type: Spontaneous
  Country: US (occurrence: US)
  Receive Date: 20210811
  Receipt Date: 20210811
  Transmission Date: 20211014
  Serious: No
  Sender: FDA-Public Use
  Company Number: US-ELI_LILLY_AND_COMPANY-US202108003883

PATIENT
  Sex: Male

DRUGS (6)
  1. TALTZ [Suspect]
     Active Substance: IXEKIZUMAB
     Indication: PRODUCT USED FOR UNKNOWN INDICATION
     Dosage: UNK UNK, UNKNOWN
     Route: 065
  2. TALTZ [Suspect]
     Active Substance: IXEKIZUMAB
     Dosage: UNK UNK, UNKNOWN
     Route: 065
  3. TALTZ [Suspect]
     Active Substance: IXEKIZUMAB
     Dosage: UNK UNK, UNKNOWN
     Route: 065
  4. TALTZ [Suspect]
     Active Substance: IXEKIZUMAB
     Indication: PRODUCT USED FOR UNKNOWN INDICATION
     Dosage: UNK UNK, UNKNOWN
     Route: 065
  5. TALTZ [Suspect]
     Active Substance: IXEKIZUMAB
     Indication: PRODUCT USED FOR UNKNOWN INDICATION
     Dosage: UNK UNK, UNKNOWN
     Route: 065
  6. TALTZ [Suspect]
     Active Substance: IXEKIZUMAB
     Dosage: UNK UNK, UNKNOWN
     Route: 065

REACTIONS (1)
  - Injection site pain [Unknown]
